FAERS Safety Report 4790986-8 (Version None)
Quarter: 2005Q4

REPORT INFORMATION
  Report Type: 
  Country: None (occurrence: None)
  Receive Date: 20051005
  Receipt Date: 20050920
  Transmission Date: 20060501
  Serious: Yes (Death)
  Sender: FDA-Public Use
  Company Number: 1905

PATIENT
  Age: 55 Year
  Sex: Male

DRUGS (5)
  1. AVINZA [Suspect]
     Indication: PAIN
     Dosage: 120 MG DAILY PO
     Route: 048
     Dates: start: 20050829, end: 20050906
  2. CLOPIDOGREL BISULFATE [Concomitant]
  3. DILTIAZEM HCL [Concomitant]
  4. ISOSORBIDE DINITRATE [Concomitant]
  5. METOPROLOL TARTRATE [Concomitant]

REACTIONS (3)
  - COMPLETED SUICIDE [None]
  - INTENTIONAL DRUG MISUSE [None]
  - OVERDOSE [None]
